FAERS Safety Report 10052362 (Version 1)
Quarter: 2014Q2

REPORT INFORMATION
  Report Type: Spontaneous
  Country: GB (occurrence: GB)
  Receive Date: 20140402
  Receipt Date: 20140402
  Transmission Date: 20141212
  Serious: Yes (Other)
  Sender: FDA-Public Use
  Company Number: GB-009507513-1403GBR011403

PATIENT
  Age: 33 Year
  Sex: Female

DRUGS (3)
  1. DEXAMETHASONE 4MG/ML INJECTION [Suspect]
     Indication: PRURITUS
     Dosage: 2 MG, ONCE
     Route: 042
  2. HYDROCORTISONE [Suspect]
     Indication: PRURITUS
     Dosage: 100 MG
     Route: 061
  3. NIFEDIPINE [Concomitant]
     Indication: BLOOD PRESSURE INCREASED
     Dosage: 10 MG, ONCE
     Route: 048

REACTIONS (1)
  - Acute psychosis [Recovered/Resolved]
